FAERS Safety Report 4386080-0 (Version None)
Quarter: 2004Q2

REPORT INFORMATION
  Report Type: 
  Country: None (occurrence: None)
  Receive Date: 20040610
  Receipt Date: 20040505
  Transmission Date: 20050107
  Serious: Yes (Hospitalization)
  Sender: FDA-Public Use
  Company Number: US-JNJFOC-20040305041

PATIENT
  Age: 62 Year
  Sex: Male
  Weight: 85.2762 kg

DRUGS (12)
  1. NATRECOR [Suspect]
     Indication: CARDIAC FAILURE CONGESTIVE
     Dosage: 2 UG/KG, INTRAVENOUS;  0.01 UG/KG/MIN, INTRAVENOUS
     Route: 042
     Dates: start: 20040319, end: 20040319
  2. NATRECOR [Suspect]
     Indication: CARDIAC FAILURE CONGESTIVE
     Dosage: 2 UG/KG, INTRAVENOUS;  0.01 UG/KG/MIN, INTRAVENOUS
     Route: 042
     Dates: start: 20040319, end: 20040319
  3. LASIX [Suspect]
     Indication: DIURETIC THERAPY
     Dosage: INTRAVENOUS
     Route: 042
  4. ZAROXOLYN [Suspect]
     Indication: DIURETIC THERAPY
     Dosage: ORAL
     Route: 048
  5. LOPRESSOR [Concomitant]
  6. COREG [Concomitant]
  7. ZESTRIL [Concomitant]
  8. DIGOXIN [Concomitant]
  9. LIPITOR [Concomitant]
  10. DILANTIN [Concomitant]
  11. ASPIRIN [Concomitant]
  12. MULTIVITAMIN (MULTIVITAMINS) [Concomitant]

REACTIONS (2)
  - HYPERHIDROSIS [None]
  - HYPOTENSION [None]
